FAERS Safety Report 5717959-2 (Version None)
Quarter: 2008Q2

REPORT INFORMATION
  Report Type: 
  Country: None (occurrence: None)
  Receive Date: 20080425
  Receipt Date: 20080421
  Transmission Date: 20081010
  Serious: Yes (Hospitalization, Disabling, Other)
  Sender: FDA-Public Use
  Company Number: A0714329A

PATIENT
  Age: 16 Year
  Sex: Male
  Weight: 67.3 kg

DRUGS (2)
  1. LAMICTAL [Suspect]
     Dosage: 50MG PER DAY
     Route: 048
     Dates: start: 20080215, end: 20080303
  2. NO CONCURRENT MEDICATION [Concomitant]

REACTIONS (16)
  - ANOREXIA [None]
  - BLISTER [None]
  - CONJUNCTIVITIS [None]
  - DEHYDRATION [None]
  - DYSPHAGIA [None]
  - EYE PAIN [None]
  - FATIGUE [None]
  - GROIN PAIN [None]
  - ILL-DEFINED DISORDER [None]
  - LIP HAEMORRHAGE [None]
  - MOUTH ULCERATION [None]
  - MUCOUS MEMBRANE DISORDER [None]
  - OCULAR HYPERAEMIA [None]
  - PHARYNGEAL ULCERATION [None]
  - SKIN EXFOLIATION [None]
  - STEVENS-JOHNSON SYNDROME [None]
